FAERS Safety Report 8259188-7 (Version None)
Quarter: 2012Q2

REPORT INFORMATION
  Report Type: 
  Country: None (occurrence: None)
  Receive Date: 20120404
  Receipt Date: 20120326
  Transmission Date: 20120825
  Serious: Yes (Disabling)
  Sender: FDA-Public Use
  Company Number: IT-ASTRAZENECA-2012SE20073

PATIENT
  Age: 18625 Day
  Sex: Female

DRUGS (2)
  1. TAPAZOLE [Concomitant]
     Indication: BASEDOW'S DISEASE
     Dates: start: 20100401
  2. OMEPRAZOLE [Suspect]
     Indication: GASTROOESOPHAGEAL REFLUX DISEASE
     Route: 048
     Dates: start: 20040101, end: 20120301

REACTIONS (1)
  - OSTEOPOROSIS [None]
